FAERS Safety Report 9028253 (Version 1)
Quarter: 2013Q1

REPORT INFORMATION
  Report Type: Spontaneous
  Country: US (occurrence: None)
  Receive Date: 20130115
  Receipt Date: 20130115
  Transmission Date: 20140127
  Serious: Yes (Hospitalization)
  Sender: FDA-Public Use
  Company Number: None

PATIENT
  Age: 65 Year
  Sex: Female
  Weight: 83.92 kg

DRUGS (1)
  1. LEVOFLOXACIN [Suspect]
     Route: 048
     Dates: start: 20121222

REACTIONS (6)
  - Muscle spasms [None]
  - Dysstasia [None]
  - Asthenia [None]
  - Blood pressure increased [None]
  - Syncope [None]
  - Stress [None]
